FAERS Safety Report 4377836-9 (Version None)
Quarter: 2004Q2

REPORT INFORMATION
  Report Type: 
  Country: None (occurrence: None)
  Receive Date: 20040616
  Receipt Date: 20040414
  Transmission Date: 20050107
  Serious: Yes (Hospitalization)
  Sender: FDA-Public Use
  Company Number: 200412875US

PATIENT
  Sex: Female
  Weight: 71.81 kg

DRUGS (8)
  1. TAXOTERE [Suspect]
     Indication: BREAST CANCER
     Route: 042
     Dates: start: 20040322, end: 20040405
  2. CARBOPLATIN [Suspect]
     Indication: BREAST CANCER
     Dosage: DOSE: AUC=2
     Route: 042
     Dates: start: 20040322, end: 20040405
  3. XELODA [Suspect]
     Indication: BREAST CANCER
     Route: 048
     Dates: start: 20040326, end: 20040408
  4. DECADRON [Suspect]
     Indication: PROPHYLACTIC CHEMOTHERAPY
     Route: 042
     Dates: start: 20040322, end: 20040405
  5. PERCOCET [Concomitant]
     Dates: start: 20040223
  6. TYLENOL W/ CODEINE NO. 3 [Concomitant]
     Dates: start: 20040405
  7. OXYCONTIN [Concomitant]
     Dates: start: 20040329
  8. COMPAZINE [Concomitant]
     Dates: start: 20040322

REACTIONS (11)
  - ANGIOMYOLIPOMA [None]
  - BACTERIA URINE [None]
  - ERYTHEMA [None]
  - HAEMATOCRIT DECREASED [None]
  - HAEMOGLOBIN DECREASED [None]
  - INTERNATIONAL NORMALISED RATIO DECREASED [None]
  - OEDEMA PERIPHERAL [None]
  - RHABDOMYOLYSIS [None]
  - SUBCUTANEOUS ABSCESS [None]
  - SWELLING [None]
  - URINARY TRACT INFECTION [None]
